FAERS Safety Report 6108597-0 (Version None)
Quarter: 2009Q1

REPORT INFORMATION
  Report Type: 
  Country: None (occurrence: None)
  Receive Date: 20090305
  Receipt Date: 20090302
  Transmission Date: 20090719
  Serious: Yes (Death)
  Sender: FDA-Public Use
  Company Number: GXKR2009DE02447

PATIENT
  Age: 48 Year
  Sex: Male
  Weight: 70 kg

DRUGS (5)
  1. PROMETHAZINE              (PROMETHAZINE) UNKNOWN [Suspect]
     Indication: BRAIN INJURY
     Dosage: 25 MG, QD, ORAL
     Route: 048
  2. VALPROATE          (VALPROATE) UNKNOWN [Suspect]
     Indication: EPILEPSY
     Dosage: 600 MG, BID, ORAL
     Route: 048
  3. TRI-THIAZID           (HYDROCHLOROTHIAZIDE, TRIAMTERENE) [Suspect]
     Indication: OEDEMA
     Dosage: 12.5 MG, QD
  4. RISPERDAL [Suspect]
     Indication: BRAIN INJURY
     Dosage: 1 MG, BID, ORAL
     Route: 048
  5. GABAPENTIN [Suspect]
     Indication: EPILEPSY
     Dosage: 300 MG, TID

REACTIONS (3)
  - BONE MARROW FAILURE [None]
  - LEUKOPENIA [None]
  - THROMBOCYTOPENIA [None]
